FAERS Safety Report 6663601-6 (Version None)
Quarter: 2010Q1

REPORT INFORMATION
  Report Type: 
  Country: None (occurrence: None)
  Receive Date: 20100331
  Receipt Date: 20100331
  Transmission Date: 20100710
  Serious: Yes (Other)
  Sender: FDA-Public Use
  Company Number: None

PATIENT
  Age: 75 Year
  Sex: Female
  Weight: 52.1637 kg

DRUGS (1)
  1. ALENDRONATE SODIUM [Suspect]
     Indication: OSTEOPOROSIS
     Dosage: 1 TABLET ONCE WEEKLY PO
     Route: 048
     Dates: start: 20100208, end: 20100326

REACTIONS (10)
  - ARTHRALGIA [None]
  - CHEST PAIN [None]
  - DEPRESSION [None]
  - DYSPHAGIA [None]
  - FEELING ABNORMAL [None]
  - JOINT SWELLING [None]
  - MOBILITY DECREASED [None]
  - MORBID THOUGHTS [None]
  - MYALGIA [None]
  - PAIN IN JAW [None]
